FAERS Safety Report 7558072-1 (Version None)
Quarter: 2011Q2

REPORT INFORMATION
  Report Type: 
  Country: None (occurrence: None)
  Receive Date: 20110613
  Receipt Date: 20110609
  Transmission Date: 20111010
  Serious: Yes (Life-Threatening)
  Sender: FDA-Public Use
  Company Number: 2011SP026735

PATIENT
  Age: 45 Year
  Sex: Female

DRUGS (1)
  1. DESLORATADINE [Suspect]
     Indication: DERMATITIS ALLERGIC
     Dosage: 5 MG, QD, PO
     Route: 048
     Dates: start: 20110212, end: 20110213

REACTIONS (2)
  - DISCOMFORT [None]
  - DYSPNOEA [None]
